FAERS Safety Report 24601138 (Version 1)
Quarter: 2024Q4

REPORT INFORMATION
  Report Type: Spontaneous
  Country: AU (occurrence: AU)
  Receive Date: 20241110
  Receipt Date: 20241110
  Transmission Date: 20250115
  Serious: Yes (Other)
  Sender: ASTELLAS
  Company Number: AU-GILEAD-2024-0692786

PATIENT
  Sex: Female

DRUGS (1)
  1. AMPHOTERICIN B [Suspect]
     Active Substance: AMPHOTERICIN B
     Indication: Bezoar
     Dosage: UNK
     Route: 065

REACTIONS (2)
  - Urinary tract candidiasis [Unknown]
  - Drug ineffective [Unknown]
